FAERS Safety Report 11288563 (Version 1)
Quarter: 2015Q3

REPORT INFORMATION
  Report Type: Spontaneous
  Country: US (occurrence: US)
  Receive Date: 20150721
  Receipt Date: 20150721
  Transmission Date: 20151125
  Serious: No
  Sender: FDA-Public Use
  Company Number: US-UNITED THERAPEUTICS-UNT-2015-003513

PATIENT
  Sex: Female

DRUGS (2)
  1. REMODULIN [Suspect]
     Active Substance: TREPROSTINIL
     Indication: PULMONARY ARTERIAL HYPERTENSION
     Dosage: 0.0615 ?G/KG/MIN, CONTINUING
     Route: 058
     Dates: start: 20120830
  2. REMODULIN [Suspect]
     Active Substance: TREPROSTINIL
     Dosage: 0.064 ?G/KG/MIN, CONTINUING
     Route: 058
     Dates: start: 20130909

REACTIONS (5)
  - Flushing [Unknown]
  - Nausea [Unknown]
  - Blister [Unknown]
  - Infusion site haemorrhage [Unknown]
  - Fistula [Unknown]

NARRATIVE: CASE EVENT DATE: 20150323
